FAERS Safety Report 15813163 (Version 2)
Quarter: 2019Q1

REPORT INFORMATION
  Report Type: Spontaneous
  Country: JP (occurrence: JP)
  Receive Date: 20190111
  Receipt Date: 20190122
  Transmission Date: 20190417
  Serious: Yes (Hospitalization, Other)
  Sender: FDA-Public Use
  Company Number: JP-GLAXOSMITHKLINE-JP2016JPN035958

PATIENT
  Age: 51 Year
  Sex: Male

DRUGS (1)
  1. LAMICTAL [Suspect]
     Active Substance: LAMOTRIGINE
     Indication: BIPOLAR DISORDER
     Dosage: UNK
     Route: 048
     Dates: start: 2015, end: 2015

REACTIONS (12)
  - Subcorneal pustular dermatosis [Unknown]
  - Rash generalised [Recovered/Resolved]
  - Purpura [Unknown]
  - Skin degenerative disorder [Unknown]
  - Acute generalised exanthematous pustulosis [Unknown]
  - Pyrexia [Recovered/Resolved]
  - Hepatic enzyme increased [Recovered/Resolved]
  - Seborrhoeic dermatitis [Unknown]
  - Rash pustular [Unknown]
  - Generalised erythema [Unknown]
  - Perivascular dermatitis [Unknown]
  - Drug reaction with eosinophilia and systemic symptoms [Unknown]

NARRATIVE: CASE EVENT DATE: 2015
